FAERS Safety Report 21023815 (Version 2)
Quarter: 2023Q2

REPORT INFORMATION
  Report Type: Report from Study
  Country: EG (occurrence: EG)
  Receive Date: 20220629
  Receipt Date: 20230502
  Transmission Date: 20230721
  Serious: Yes (Other)
  Sender: FDA-Public Use
  Company Number: EG-NOVARTISPH-NVSC2022EG144638

PATIENT
  Age: 45 Year
  Sex: Male

DRUGS (22)
  1. ENTRESTO [Suspect]
     Active Substance: SACUBITRIL\VALSARTAN
     Indication: Cardiac failure
     Dosage: 50 MG
     Route: 048
     Dates: start: 20211004, end: 202203
  2. ENTRESTO [Suspect]
     Active Substance: SACUBITRIL\VALSARTAN
     Dosage: 100 MG, BID 12 DAY AGO STOPPED
     Route: 048
     Dates: start: 202203
  3. ENTRESTO [Suspect]
     Active Substance: SACUBITRIL\VALSARTAN
     Dosage: 50 MG, BID (START DATE: 12 DAY AGO)
     Route: 048
  4. ENTRESTO [Suspect]
     Active Substance: SACUBITRIL\VALSARTAN
     Dosage: 50 MG, BID
     Route: 048
     Dates: end: 202204
  5. ENTRESTO [Suspect]
     Active Substance: SACUBITRIL\VALSARTAN
     Dosage: 100 MG, BID
     Route: 048
     Dates: start: 202204, end: 202206
  6. ENTRESTO [Suspect]
     Active Substance: SACUBITRIL\VALSARTAN
     Dosage: 50 MG, BID
     Route: 048
     Dates: start: 202206, end: 20230210
  7. ENTRESTO [Suspect]
     Active Substance: SACUBITRIL\VALSARTAN
     Dosage: 150 MG, BID (ENTRESTO 100 MG ONE TABLET IN THE MORNING AND ENTRESTO 50  MG ONE TABLET IN THE NIGHT)
     Route: 048
     Dates: start: 20230210
  8. TICAGRELOR [Concomitant]
     Active Substance: TICAGRELOR
     Indication: Prophylaxis
     Dosage: 1 DOSAGE FORM, QD
     Route: 065
     Dates: start: 202204
  9. TICAGRELOR [Concomitant]
     Active Substance: TICAGRELOR
     Indication: Anticoagulant therapy
     Dosage: UNK
     Route: 065
  10. IVABRADINE [Concomitant]
     Active Substance: IVABRADINE
     Indication: Product used for unknown indication
     Dosage: 0.5 DOSAGE FORM (HALF TABLET), BID (5 MG)
     Route: 065
     Dates: start: 202204
  11. IVABRADINE [Concomitant]
     Active Substance: IVABRADINE
     Dosage: 1 DOSAGE FORM, BID (7.5 MG)
     Route: 048
  12. ISOSORBIDE MONONITRATE [Concomitant]
     Active Substance: ISOSORBIDE MONONITRATE
     Indication: Product used for unknown indication
     Dosage: 1 DOSAGE FORM, QD
     Route: 065
     Dates: start: 202110, end: 202204
  13. PANTOPRAZOLE SODIUM [Concomitant]
     Active Substance: PANTOPRAZOLE SODIUM
     Indication: Abdominal discomfort
     Dosage: 1 DOSAGE FORM, QD ( ONE TABLET PER DAY ON EMPTY STOMACH AT MORNING)
     Route: 048
     Dates: start: 202008
  14. ASPIRIN [Concomitant]
     Active Substance: ASPIRIN
     Indication: Prophylaxis
     Dosage: 1 DOSAGE FORM, QD
     Route: 065
     Dates: start: 202110
  15. DAPAGLIFLOZIN [Concomitant]
     Active Substance: DAPAGLIFLOZIN
     Indication: Diabetes mellitus
     Dosage: 1 DOSAGE FORM, QD
     Route: 065
     Dates: start: 202204
  16. DAPAGLIFLOZIN [Concomitant]
     Active Substance: DAPAGLIFLOZIN
     Indication: Diabetes mellitus
     Dosage: 1 DOSAGE FORM, QD
     Route: 065
     Dates: start: 202111, end: 202204
  17. VASTAREL [Concomitant]
     Active Substance: TRIMETAZIDINE DIHYDROCHLORIDE
     Indication: Product used for unknown indication
     Dosage: 1 DOSAGE FORM, BID
     Route: 048
     Dates: start: 202301
  18. METOPROLOL SUCCINATE [Concomitant]
     Active Substance: METOPROLOL SUCCINATE
     Indication: Product used for unknown indication
     Dosage: 1 DOSAGE FORM, QD (AT NIGHT)
     Route: 048
  19. ASPIRIN [Concomitant]
     Active Substance: ASPIRIN
     Indication: Product used for unknown indication
     Dosage: 1 DOSAGE FORM, QD (AFTER LUNCH)
     Route: 048
  20. ESZOPICLONE [Concomitant]
     Active Substance: ESZOPICLONE
     Indication: Insomnia
     Dosage: 1 DOSAGE FORM, PRN
     Route: 048
  21. ESZOPICLONE [Concomitant]
     Active Substance: ESZOPICLONE
     Indication: Sedation
  22. MOODAPEX [Concomitant]
     Indication: Cardiac disorder
     Dosage: 1 DOSAGE FORM, QD (AT THE NIGHT)
     Route: 048

REACTIONS (13)
  - Thrombosis [Recovering/Resolving]
  - Vascular stent thrombosis [Unknown]
  - Chest pain [Not Recovered/Not Resolved]
  - Dyspnoea exertional [Not Recovered/Not Resolved]
  - Coronary artery occlusion [Not Recovered/Not Resolved]
  - Fatigue [Not Recovered/Not Resolved]
  - Vasoconstriction [Recovering/Resolving]
  - Vitamin D deficiency [Unknown]
  - Hypotension [Recovered/Resolved]
  - Dizziness [Unknown]
  - Anxiety [Recovering/Resolving]
  - Stress [Recovering/Resolving]
  - Depression [Recovering/Resolving]

NARRATIVE: CASE EVENT DATE: 20211201
